FAERS Safety Report 10202733 (Version 1)
Quarter: 2014Q2

REPORT INFORMATION
  Report Type: Report from Study
  Country: US (occurrence: US)
  Receive Date: 20140528
  Receipt Date: 20140528
  Transmission Date: 20141212
  Serious: Yes (Death, Other)
  Sender: FDA-Public Use
  Company Number: US-MYLANLABS-2014S1009956

PATIENT
  Age: 81 Year
  Sex: Female
  Weight: 44 kg

DRUGS (27)
  1. CLOZAPINE TABLETS [Suspect]
     Indication: PARKINSON^S DISEASE PSYCHOSIS
     Route: 048
     Dates: start: 201204, end: 201404
  2. CLOZAPINE TABLETS [Suspect]
     Indication: AGGRESSION
     Route: 048
     Dates: start: 201204, end: 201404
  3. CLOZAPINE TABLETS [Suspect]
     Indication: OFF LABEL USE
     Route: 048
     Dates: start: 201204, end: 201404
  4. CLOZAPINE TABLETS [Suspect]
     Indication: DELUSION
     Route: 048
     Dates: start: 201204, end: 201404
  5. DIPHENHYDRAMINE [Concomitant]
     Indication: INSOMNIA
     Dosage: QHS PRN
  6. NORMAL SALINE [Concomitant]
     Route: 042
  7. FUROSEMIDE [Concomitant]
     Route: 042
  8. TYLENOL [Concomitant]
  9. TYLENOL [Concomitant]
     Indication: PAIN
  10. ARTIFICIAL TEARS /00445101/ [Concomitant]
     Indication: DRY EYE
     Route: 047
  11. ALUMINIUM W/MAGNESIUM HYDROXIDE/SIMETICONE [Concomitant]
     Indication: GASTROOESOPHAGEAL REFLUX DISEASE
  12. ASA [Concomitant]
  13. CALCIUM CARBONATE [Concomitant]
     Indication: DYSPEPSIA
     Dosage: PRN QID
     Route: 048
  14. CALCIUM VITAMIN D [Concomitant]
     Indication: NUTRITIONAL SUPPLEMENTATION
  15. CARBIDOPA LEVODOPA [Concomitant]
     Indication: PARKINSON^S DISEASE
     Dosage: 25/100MG, 1 1/2 TABLETS 5 TIMES DAILY
     Route: 048
  16. VITAMIN B12 [Concomitant]
     Route: 030
  17. ENTACAPONE [Concomitant]
     Dosage: AT 7:00 + 1:00
  18. ESCITALOPRAM [Concomitant]
     Indication: MAJOR DEPRESSION
  19. LORAZEPAM [Concomitant]
     Indication: ANXIETY
  20. MILK OF MAGNESIA [Concomitant]
     Dosage: EVERY OTHER NIGHT
  21. MENTHOL [Concomitant]
     Indication: ARTHRITIS
     Route: 061
  22. MULTI VITAMIN + MINERAL [Concomitant]
  23. OMEPRAZOLE [Concomitant]
  24. RANITIDINE [Concomitant]
  25. SUCRALFATE [Concomitant]
  26. TRAZODONE [Concomitant]
     Indication: DEPRESSION
     Dosage: 100MG QHS; 150MG @ 11:00 AM + 3:00 PM; 12.5MG @ 7:00AM ;25MG @ 5:00 PM
  27. TRAZODONE [Concomitant]
     Indication: DEPRESSION
     Dosage: Q6HR PRN

REACTIONS (6)
  - Parkinson^s disease [Fatal]
  - Colitis ischaemic [Fatal]
  - Renal failure acute [Fatal]
  - Dehydration [Not Recovered/Not Resolved]
  - Abdominal pain [Not Recovered/Not Resolved]
  - Asthenia [Not Recovered/Not Resolved]
